FAERS Safety Report 6739695-6 (Version None)
Quarter: 2010Q2

REPORT INFORMATION
  Report Type: 
  Country: None (occurrence: None)
  Receive Date: 20100525
  Receipt Date: 20100513
  Transmission Date: 20101027
  Serious: Yes (Death, Hospitalization)
  Sender: FDA-Public Use
  Company Number: GB-ROCHE-700477

PATIENT
  Sex: Male

DRUGS (2)
  1. XELODA [Suspect]
     Dosage: LOW DOSE - AS PART OF XELOX THERAPY, (DOSAGE: 1/1 CYCLICAL).
     Route: 065
     Dates: start: 20100205
  2. OXALIPLATIN [Suspect]
     Dosage: AS PART OF XELOX THERAPY
     Route: 041
     Dates: start: 20100205, end: 20100205

REACTIONS (3)
  - DEATH [None]
  - DIARRHOEA [None]
  - MUCOSAL INFLAMMATION [None]
